FAERS Safety Report 25305492 (Version 1)
Quarter: 2025Q2

REPORT INFORMATION
  Report Type: Spontaneous
  Country: US (occurrence: None)
  Receive Date: 20250513
  Receipt Date: 20250513
  Transmission Date: 20250716
  Serious: Yes (Hospitalization)
  Sender: FDA-CTU
  Company Number: None

PATIENT
  Age: 35 Year
  Sex: Male
  Weight: 75 kg

DRUGS (2)
  1. VALPROIC ACID [Suspect]
     Active Substance: VALPROIC ACID
     Indication: Bipolar I disorder
     Dosage: FREQUENCY : TWICE A DAY;?
     Route: 048
  2. DIVALPROEX SODIUM [Suspect]
     Active Substance: DIVALPROEX SODIUM
     Indication: Bipolar I disorder
     Dosage: FREQUENCY : AT BEDTIME;?
     Route: 048
     Dates: start: 20250115, end: 20250123

REACTIONS (7)
  - Dermatitis [None]
  - Eosinophilia [None]
  - Erythema [None]
  - Rash papular [None]
  - Pruritus [None]
  - Skin burning sensation [None]
  - Therapy cessation [None]

NARRATIVE: CASE EVENT DATE: 20250125
